FAERS Safety Report 20264210 (Version 1)
Quarter: 2021Q4

REPORT INFORMATION
  Report Type: Spontaneous
  Country: US (occurrence: US)
  Receive Date: 20211231
  Receipt Date: 20211231
  Transmission Date: 20220303
  Serious: No
  Sender: FDA-Public Use
  Company Number: US-GLAXOSMITHKLINE-US2021AMR264777

PATIENT
  Sex: Female

DRUGS (2)
  1. BENLYSTA [Suspect]
     Active Substance: BELIMUMAB
     Indication: Systemic lupus erythematosus
     Dosage: 200 MG/ML, WE, ONCE WEEKLY.
     Route: 058
  2. BENLYSTA [Suspect]
     Active Substance: BELIMUMAB
     Indication: Ankylosing spondylitis

REACTIONS (5)
  - Fall [Unknown]
  - Feeling abnormal [Unknown]
  - Contusion [Unknown]
  - Drug ineffective [Unknown]
  - Product use in unapproved indication [Unknown]
